FAERS Safety Report 9426487 (Version 1)
Quarter: 2013Q3

REPORT INFORMATION
  Report Type: Spontaneous
  Country: DE (occurrence: DE)
  Receive Date: 20130730
  Receipt Date: 20130730
  Transmission Date: 20140515
  Serious: Yes (Hospitalization)
  Sender: FDA-Public Use
  Company Number: DE-JNJFOC-20130619138

PATIENT
  Age: 61 Year
  Sex: Male

DRUGS (6)
  1. ZYTIGA [Suspect]
     Indication: PROSTATE CANCER
     Route: 048
     Dates: start: 20130214, end: 20130320
  2. PREDNISONE [Concomitant]
     Route: 065
  3. OXYGESIC [Concomitant]
     Indication: PAIN
     Dosage: 1-0-1
     Route: 065
  4. NOVALGIN [Concomitant]
     Dosage: 4 X 30
     Route: 065
  5. VITAMIN D [Concomitant]
     Route: 065
  6. CALCIUM EFFERVESCENT TABLET [Concomitant]
     Indication: METASTASES TO BONE
     Route: 065

REACTIONS (4)
  - Nausea [Recovering/Resolving]
  - Vomiting [Recovering/Resolving]
  - Prostatic specific antigen increased [Unknown]
  - Inappropriate schedule of drug administration [Unknown]
